FAERS Safety Report 8617584-X (Version None)
Quarter: 2012Q3

REPORT INFORMATION
  Report Type: 
  Country: None (occurrence: None)
  Receive Date: 20120824
  Receipt Date: 20111121
  Transmission Date: 20120928
  Serious: No
  Sender: FDA-Public Use
  Company Number: US-ASTRAZENECA-2011SE70660

PATIENT
  Age: 83 Year
  Sex: Female
  Weight: 64.4 kg

DRUGS (8)
  1. ZESTORETIC [Suspect]
     Indication: HYPERTENSION
     Dosage: 20.5 MG 1 OR 2 TABLETS PRN
     Route: 048
  2. AMLODIPINE BESYLAPE [Concomitant]
     Indication: HYPERTENSION
  3. SYMBICORT [Suspect]
     Indication: CHRONIC OBSTRUCTIVE PULMONARY DISEASE
     Dosage: UNKNOWN
     Route: 055
  4. SYMVASTATIN [Concomitant]
     Indication: HYPERTENSION
  5. SPIRIVA [Concomitant]
     Indication: HYPERTENSION
  6. HYDROCHLOROTHIAZIDE [Concomitant]
     Indication: HYPERTENSION
  7. DIAVAN [Concomitant]
     Indication: HYPERTENSION
  8. TRAMADOLE [Concomitant]
     Indication: PAIN
     Dosage: 1 OR 2 TABLETS

REACTIONS (8)
  - BODY HEIGHT DECREASED [None]
  - ARTHRITIS [None]
  - ABDOMINAL DISTENSION [None]
  - LIP SWELLING [None]
  - BACK PAIN [None]
  - WEIGHT INCREASED [None]
  - ASTHENOPIA [None]
  - MUSCULOSKELETAL DISCOMFORT [None]
